FAERS Safety Report 11651175 (Version 2)
Quarter: 2015Q4

REPORT INFORMATION
  Report Type: Spontaneous
  Country: US (occurrence: US)
  Receive Date: 20151021
  Receipt Date: 20151022
  Transmission Date: 20160304
  Serious: No
  Sender: FDA-Public Use
  Company Number: US-PURDUE-USA-2015-0126803

PATIENT
  Age: 85 Year
  Sex: Male

DRUGS (1)
  1. OXYCODONE HCL IR CAPSULES [Suspect]
     Active Substance: OXYCODONE HYDROCHLORIDE
     Indication: PAIN
     Dosage: 5 MG 7 TIMES DAILY
     Route: 048
     Dates: end: 20151011

REACTIONS (1)
  - Drug effect decreased [Unknown]

NARRATIVE: CASE EVENT DATE: 20151011
